FAERS Safety Report 10952119 (Version 1)
Quarter: 2015Q1

REPORT INFORMATION
  Report Type: Spontaneous
  Country: US (occurrence: None)
  Receive Date: 20150226
  Receipt Date: 20150226
  Transmission Date: 20150721
  Serious: Yes (Other)
  Sender: FDA-Public Use
  Company Number: TPA2012A01612

PATIENT
  Age: 64 Year
  Sex: Male
  Weight: 97.52 kg

DRUGS (9)
  1. OMEPRAZOLE (OMEPRAZOLE) [Concomitant]
     Active Substance: OMEPRAZOLE
  2. JANUMENT (JANUMENT) [Concomitant]
  3. SIMVASTATIN (SIMVASTATIN) [Concomitant]
     Active Substance: SIMVASTATIN
  4. ACTOS [Suspect]
     Active Substance: PIOGLITAZONE HYDROCHLORIDE
     Indication: TYPE 2 DIABETES MELLITUS
     Route: 048
     Dates: start: 200808, end: 201001
  5. GLIPIZIDE SR (GLIPIZIDE) [Concomitant]
  6. VYTORIN (SIMVASTATIN, EZETIMIBE) [Concomitant]
  7. AMBIEN [Concomitant]
     Active Substance: ZOLPIDEM TARTRATE
  8. ENALAPRIL ENALAPRIL) [Concomitant]
  9. LIPITOR [Concomitant]
     Active Substance: ATORVASTATIN CALCIUM

REACTIONS (1)
  - Bladder cancer [None]

NARRATIVE: CASE EVENT DATE: 200808
